FAERS Safety Report 8581271-7 (Version None)
Quarter: 2012Q3

REPORT INFORMATION
  Report Type: 
  Country: None (occurrence: None)
  Receive Date: 20120809
  Receipt Date: 20120806
  Transmission Date: 20120928
  Serious: Yes (Other)
  Sender: FDA-Public Use
  Company Number: PHEH2012US015380

PATIENT
  Sex: Male

DRUGS (1)
  1. SANDOSTATIN LAR [Suspect]
     Dosage: 30 ML, MONTHLY

REACTIONS (8)
  - OROPHARYNGEAL DISCOMFORT [None]
  - DIZZINESS [None]
  - BACK PAIN [None]
  - HEADACHE [None]
  - HALLUCINATION [None]
  - NAUSEA [None]
  - DIARRHOEA [None]
  - MUSCULOSKELETAL PAIN [None]
